FAERS Safety Report 5315384-X (Version None)
Quarter: 2007Q2

REPORT INFORMATION
  Report Type: 
  Country: None (occurrence: None)
  Receive Date: 20070503
  Receipt Date: 20070426
  Transmission Date: 20071010
  Serious: Yes (Death, Hospitalization)
  Sender: FDA-Public Use
  Company Number: HQWYE858926APR07

PATIENT
  Age: 71 Year
  Sex: Female

DRUGS (14)
  1. INIPOMP [Suspect]
     Indication: PROPHYLAXIS
     Route: 048
     Dates: end: 20060908
  2. NEURONTIN [Suspect]
     Indication: NEUROPATHY
     Route: 048
     Dates: end: 20061101
  3. LEVOTHYROXINE SODIUM [Suspect]
     Indication: GOITRE
     Dosage: 25 UG DAILY / 100 UG DAILY
     Route: 048
     Dates: end: 20061102
  4. NEXIUM [Suspect]
     Indication: PROPHYLAXIS
     Route: 048
     Dates: start: 20061007, end: 20061011
  5. BACTRIM [Concomitant]
     Dosage: DF
     Route: 048
     Dates: end: 20060904
  6. CYCLOPHOSPHAMIDE [Concomitant]
     Indication: NON-HODGKIN'S LYMPHOMA
     Dosage: DF
     Dates: end: 20060628
  7. COZAAR [Concomitant]
     Dosage: DF
     Route: 048
     Dates: end: 20060920
  8. VALACYCLOVIR HCL [Concomitant]
     Dosage: DF
     Route: 048
     Dates: end: 20060920
  9. ORGAMETRIL [Concomitant]
     Dosage: DF
     Route: 048
     Dates: end: 20060910
  10. GAVISCON [Concomitant]
     Dosage: DF
     Route: 048
     Dates: end: 20060911
  11. EPREX [Concomitant]
     Dosage: DF
     Dates: start: 20060804, end: 20060101
  12. FLUDARABINE PHOSPHATE [Concomitant]
     Indication: NON-HODGKIN'S LYMPHOMA
     Dosage: DF
     Dates: end: 20060628
  13. MINISINTROM [Suspect]
     Dosage: 1 MG
     Route: 048
     Dates: end: 20061031
  14. LODALES [Concomitant]
     Dosage: DF
     Route: 048
     Dates: end: 20060908

REACTIONS (3)
  - DRUG RASH WITH EOSINOPHILIA AND SYSTEMIC SYMPTOMS [None]
  - SEPSIS [None]
  - TOXIC EPIDERMAL NECROLYSIS [None]
